FAERS Safety Report 9704174 (Version 1)
Quarter: 2013Q4

REPORT INFORMATION
  Report Type: Spontaneous
  Country: US (occurrence: US)
  Receive Date: 20131122
  Receipt Date: 20131122
  Transmission Date: 20140711
  Serious: No
  Sender: FDA-Public Use
  Company Number: US-GLAXOSMITHKLINE-A1042273A

PATIENT
  Age: 43 Year
  Sex: Male

DRUGS (2)
  1. WELLBUTRIN SR [Suspect]
     Indication: ATTENTION DEFICIT/HYPERACTIVITY DISORDER
     Dosage: 1TAB TWICE PER DAY
     Route: 048
     Dates: start: 2003, end: 201308
  2. NO CONCURRENT MEDICATION [Concomitant]

REACTIONS (5)
  - Gastric banding [Unknown]
  - Off label use [Unknown]
  - Drug administration error [Unknown]
  - Eructation [Unknown]
  - Flatulence [Unknown]
